FAERS Safety Report 8504824-0 (Version None)
Quarter: 2012Q3

REPORT INFORMATION
  Report Type: 
  Country: None (occurrence: None)
  Receive Date: 20120712
  Receipt Date: 20120702
  Transmission Date: 20120928
  Serious: Yes (Disabling)
  Sender: FDA-Public Use
  Company Number: US-MSD-1204USA03849

PATIENT

DRUGS (2)
  1. TRUVADA [Concomitant]
  2. ISENTRESS [Suspect]
     Indication: HIV INFECTION
     Dosage: 400 MG, BID
     Route: 048
     Dates: start: 20110915, end: 20120424

REACTIONS (2)
  - URTICARIA [None]
  - ADVERSE DRUG REACTION [None]
